FAERS Safety Report 9261806 (Version 1)
Quarter: 2013Q2

REPORT INFORMATION
  Report Type: Spontaneous
  Country: GB (occurrence: GB)
  Receive Date: 20130429
  Receipt Date: 20130429
  Transmission Date: 20140414
  Serious: Yes (Hospitalization)
  Sender: FDA-Public Use
  Company Number: GB-B.I. PHARMACEUTICALS,INC./RIDGEFIELD-2013-UK-00876UK

PATIENT
  Age: 88 Year
  Sex: Female

DRUGS (3)
  1. PRADAXA [Suspect]
     Indication: THROMBOSIS PROPHYLAXIS
     Dosage: 75 MG
     Route: 048
     Dates: start: 20130307, end: 20130313
  2. PARACETAMOL [Concomitant]
     Indication: PROCEDURAL PAIN
     Dosage: 1 G
     Route: 048
  3. TRAMADOL [Concomitant]
     Dosage: 50 MG
     Route: 048

REACTIONS (1)
  - Pain in extremity [Not Recovered/Not Resolved]
